FAERS Safety Report 6845841-6 (Version None)
Quarter: 2010Q3

REPORT INFORMATION
  Report Type: 
  Country: None (occurrence: None)
  Receive Date: 20100715
  Receipt Date: 20070924
  Transmission Date: 20110219
  Serious: No
  Sender: FDA-Public Use
  Company Number: US-PFIZER INC-2007071881

PATIENT
  Sex: Female
  Weight: 71.8 kg

DRUGS (7)
  1. CHANTIX [Suspect]
     Indication: SMOKING CESSATION THERAPY
     Dates: start: 20070701, end: 20070901
  2. PLAVIX [Concomitant]
  3. MOBIC [Concomitant]
  4. ATENOLOL [Concomitant]
     Indication: HYPERTENSION
  5. TRIAMTERENE [Concomitant]
     Indication: HYPERTENSION
  6. ACETYLSALICYLIC ACID [Concomitant]
  7. GAVISCON [Concomitant]
     Indication: GASTROOESOPHAGEAL REFLUX DISEASE

REACTIONS (4)
  - DYSGEUSIA [None]
  - GASTROOESOPHAGEAL REFLUX DISEASE [None]
  - NAUSEA [None]
  - VOMITING [None]
